FAERS Safety Report 10266620 (Version 1)
Quarter: 2014Q2

REPORT INFORMATION
  Report Type: Spontaneous
  Country: US (occurrence: None)
  Receive Date: 20140625
  Receipt Date: 20140625
  Transmission Date: 20141212
  Serious: Yes (Other)
  Sender: FDA-Public Use
  Company Number: None

PATIENT
  Age: 56 Year
  Sex: Female
  Weight: 68.04 kg

DRUGS (2)
  1. TRAZODONE 50 MG [Suspect]
     Indication: ANXIETY
     Dosage: 1 PILL ONCE DAILY TAKEN BY MOUTH
     Route: 048
     Dates: start: 20140605, end: 20140618
  2. TRAZODONE 50 MG [Suspect]
     Indication: IRRITABLE BOWEL SYNDROME
     Dosage: 1 PILL ONCE DAILY TAKEN BY MOUTH
     Route: 048
     Dates: start: 20140605, end: 20140618

REACTIONS (3)
  - Serotonin syndrome [None]
  - Dyspnoea [None]
  - Hypertension [None]
